FAERS Safety Report 12452753 (Version 4)
Quarter: 2016Q4

REPORT INFORMATION
  Report Type: Spontaneous
  Country: US (occurrence: US)
  Receive Date: 20160609
  Receipt Date: 20161005
  Transmission Date: 20170207
  Serious: No
  Sender: FDA-Public Use
  Company Number: US-BAYER-2016-106276

PATIENT
  Age: 58 Year
  Sex: Female

DRUGS (2)
  1. CLIMARA PRO [Suspect]
     Active Substance: ESTRADIOL\LEVONORGESTREL
     Indication: MENOPAUSE
     Dosage: UNK
     Route: 062
     Dates: start: 201605
  2. CLIMARA PRO [Suspect]
     Active Substance: ESTRADIOL\LEVONORGESTREL
     Indication: HORMONE REPLACEMENT THERAPY

REACTIONS (9)
  - Product difficult to remove [None]
  - Application site reaction [None]
  - Product physical issue [None]
  - Product adhesion issue [None]
  - Adverse event [None]
  - Application site rash [None]
  - Hormone level abnormal [None]
  - Migraine [None]
  - Device use error [None]
